FAERS Safety Report 8740916 (Version 3)
Quarter: 2013Q4

REPORT INFORMATION
  Report Type: Spontaneous
  Country: US (occurrence: US)
  Receive Date: 20120824
  Receipt Date: 20131003
  Transmission Date: 20140711
  Serious: No
  Sender: FDA-Public Use
  Company Number: US-009507513-1208USA003071

PATIENT
  Sex: Male

DRUGS (3)
  1. MAXALT [Suspect]
     Indication: MIGRAINE
     Dosage: UNK
     Dates: start: 201204, end: 20120716
  2. DOXYCYCLINE [Concomitant]
  3. ARTHROTEC [Concomitant]

REACTIONS (3)
  - Blood testosterone decreased [Recovering/Resolving]
  - Sperm concentration decreased [Recovering/Resolving]
  - Fatigue [Recovering/Resolving]
